FAERS Safety Report 20699732 (Version 1)
Quarter: 2022Q2

REPORT INFORMATION
  Report Type: Spontaneous
  Country: US (occurrence: None)
  Receive Date: 20220411
  Receipt Date: 20220411
  Transmission Date: 20220720
  Serious: Yes (Death)
  Sender: FDA-Public Use
  Company Number: None

PATIENT
  Age: 68 Year
  Sex: Male
  Weight: 64.41 kg

DRUGS (5)
  1. INLYTA [Suspect]
     Active Substance: AXITINIB
     Indication: Malignant neoplasm of renal pelvis
  2. AMLODIPINE [Concomitant]
     Active Substance: AMLODIPINE BESYLATE
  3. BUMETANIDE [Concomitant]
     Active Substance: BUMETANIDE
  4. LANTUS [Concomitant]
  5. SOLOSTAR [Concomitant]
     Active Substance: DEVICE

REACTIONS (1)
  - Death [None]
